FAERS Safety Report 13360814 (Version 2)
Quarter: 2017Q2

REPORT INFORMATION
  Report Type: Spontaneous
  Country: US (occurrence: US)
  Receive Date: 20170322
  Receipt Date: 20170613
  Transmission Date: 20170830
  Serious: Yes (Life-Threatening, Hospitalization, Disabling)
  Sender: FDA-Public Use
  Company Number: US-009507513-1703USA008160

PATIENT
  Age: 50 Year
  Sex: Male
  Weight: 70.31 kg

DRUGS (13)
  1. VALIUM [Concomitant]
     Active Substance: DIAZEPAM
     Indication: MUSCLE SPASMS
     Dosage: 1 TABLET(2 MG), EVERY 8 HOURS AS NEEDED
     Route: 048
  2. AMBIEN [Concomitant]
     Active Substance: ZOLPIDEM TARTRATE
     Indication: INSOMNIA
     Dosage: 1 TABLET (10 MG), EVERY EVENING AT BEDTIME AS NEEDED
     Route: 048
  3. LORAZEPAM. [Concomitant]
     Active Substance: LORAZEPAM
     Dosage: 0.25 TABLET EVERY 8 HOURS(Q8H), PRN
     Route: 048
  4. MIRALAX [Concomitant]
     Active Substance: POLYETHYLENE GLYCOL 3350
     Dosage: UNK UNK, PRN
  5. OXYCONTIN [Concomitant]
     Active Substance: OXYCODONE HYDROCHLORIDE
     Dosage: 1 TABLET(10 MG), EVERY EVENING AT BEDTIME
     Route: 048
  6. NEURONTIN [Concomitant]
     Active Substance: GABAPENTIN
     Dosage: 300 MG, AT NIGNT
  7. TIZANIDINE HYDROCHLORIDE. [Concomitant]
     Active Substance: TIZANIDINE HYDROCHLORIDE
     Indication: PAIN
     Dosage: 0.5-1 TABLET, EVERY 8 HOURS FOR 14 DAYS AS NEEDED
     Route: 048
  8. TYLENOL [Concomitant]
     Active Substance: ACETAMINOPHEN
     Dosage: UNK UNK, AS NEEDED
  9. ZYLOPRIM [Concomitant]
     Active Substance: ALLOPURINOL
     Dosage: 1 TABLET(100 MG), THREE TIMES A DAY
     Route: 048
  10. PREVACID [Concomitant]
     Active Substance: LANSOPRAZOLE
     Dosage: 30 MG DAILY AS NEEDED
     Route: 048
  11. KEYTRUDA [Suspect]
     Active Substance: PEMBROLIZUMAB
     Indication: TRANSITIONAL CELL CANCER OF THE RENAL PELVIS AND URETER
     Dosage: UNK
     Route: 042
     Dates: start: 20151001, end: 20151223
  12. BENADRYL [Concomitant]
     Active Substance: DIPHENHYDRAMINE HYDROCHLORIDE
     Dosage: 1 TABLET (25 MG) AT NIGHT AS NEEDED
     Route: 048
  13. OXYCODONE [Concomitant]
     Active Substance: OXYCODONE
     Dosage: 1 TABLET (10 MG), EVERY 2 HOURS
     Route: 048

REACTIONS (12)
  - Hyponatraemia [Recovered/Resolved]
  - Pulmonary mass [Unknown]
  - Musculoskeletal pain [Unknown]
  - Thrombocytopenia [Recovered/Resolved]
  - Headache [Recovered/Resolved]
  - Polyneuropathy [Unknown]
  - Muscle spasms [Unknown]
  - Malignant neoplasm progression [Unknown]
  - Muscular weakness [Unknown]
  - Flank pain [Unknown]
  - Pain [Unknown]
  - Lipoma [Unknown]

NARRATIVE: CASE EVENT DATE: 2016
